FAERS Safety Report 6425947-6 (Version None)
Quarter: 2009Q4

REPORT INFORMATION
  Report Type: 
  Country: None (occurrence: None)
  Receive Date: 20091103
  Receipt Date: 20091103
  Transmission Date: 20100525
  Serious: Yes (Disabling, Other)
  Sender: FDA-Public Use
  Company Number: None

PATIENT

DRUGS (1)
  1. HEPARIN SODIUM [Suspect]
     Indication: DEEP VEIN THROMBOSIS
     Dosage: 1 CARTRIDGE Q8H SQ
     Route: 058
     Dates: start: 20091022, end: 20091102

REACTIONS (5)
  - DEVICE INEFFECTIVE [None]
  - DEVICE MALFUNCTION [None]
  - MEDICATION ERROR [None]
  - NEEDLE ISSUE [None]
  - SYRINGE ISSUE [None]
